FAERS Safety Report 7727433-X (Version None)
Quarter: 2011Q3

REPORT INFORMATION
  Report Type: 
  Country: None (occurrence: None)
  Receive Date: 20110902
  Receipt Date: 20110824
  Transmission Date: 20111222
  Serious: Yes (Hospitalization)
  Sender: FDA-Public Use
  Company Number: CZ-ABBOTT-11P-217-0728696-01

PATIENT
  Sex: Female
  Weight: 56 kg

DRUGS (11)
  1. PREDNISONE [Concomitant]
  2. BUDESONIDE [Concomitant]
     Indication: CROHN'S DISEASE
     Dates: start: 20090701
  3. KALIUM [Concomitant]
     Indication: ELECTROLYTE SUBSTITUTION THERAPY
     Dates: start: 20090501
  4. HUMIRA [Suspect]
     Dosage: WEEK 2
     Route: 058
     Dates: start: 20091102
  5. MESALAMINE [Concomitant]
     Indication: CROHN'S DISEASE
     Dates: start: 20090401
  6. HUMIRA [Suspect]
     Indication: CROHN'S DISEASE
     Dosage: BASELINE
     Route: 058
     Dates: start: 20091016, end: 20091016
  7. PREDNISONE [Concomitant]
     Indication: CROHN'S DISEASE
     Dates: start: 20090401
  8. METRONIDAZOLE [Concomitant]
     Indication: FISTULA
     Dates: start: 20090701
  9. ACETAMINOPHEN [Concomitant]
     Indication: PYREXIA
     Dosage: ONE TO FOUR PER DAY
     Dates: start: 20110318, end: 20110329
  10. FAMITIDINUM [Concomitant]
     Indication: CROHN'S DISEASE
  11. AZATHIOPRINE [Concomitant]
     Indication: CROHN'S DISEASE
     Dates: start: 20090701

REACTIONS (1)
  - ABORTION INDUCED [None]
